FAERS Safety Report 7410779-2 (Version None)
Quarter: 2011Q2

REPORT INFORMATION
  Report Type: 
  Country: None (occurrence: None)
  Receive Date: 20110413
  Receipt Date: 20110404
  Transmission Date: 20111010
  Serious: Yes (Other)
  Sender: FDA-Public Use
  Company Number: IE-US-EMD SERONO, INC.-7050586

PATIENT
  Sex: Male
  Weight: 62 kg

DRUGS (3)
  1. SAIZEN [Suspect]
     Indication: PRODUCT USED FOR UNKNOWN INDICATION
     Dates: start: 20090222, end: 20101213
  2. TESTOSTERONE REPLACEMENT THERAPY [Concomitant]
     Indication: HORMONE THERAPY
  3. SEROTONIN [Concomitant]
     Route: 048

REACTIONS (1)
  - INSULIN RESISTANCE [None]
